FAERS Safety Report 8623430-0 (Version None)
Quarter: 2012Q3

REPORT INFORMATION
  Report Type: 
  Country: None (occurrence: None)
  Receive Date: 20120827
  Receipt Date: 20120815
  Transmission Date: 20120928
  Serious: Yes (Hospitalization, Other)
  Sender: FDA-Public Use
  Company Number: CA-ELI_LILLY_AND_COMPANY-CA201208005299

PATIENT
  Age: 78 Year
  Sex: Female

DRUGS (9)
  1. FOLIC ACID [Concomitant]
  2. FORTEO [Suspect]
     Dosage: 20 UG, QD
     Dates: start: 20120815
  3. EURO-FER [Concomitant]
  4. VITAMIN B-12 [Concomitant]
  5. URSODIOL [Concomitant]
  6. FORTEO [Suspect]
     Indication: OSTEOPOROSIS
     Dosage: 20 UG, QD
     Route: 058
     Dates: start: 20111017, end: 20120704
  7. CALCIUM [Concomitant]
  8. LEVOTHYROXINE SODIUM [Concomitant]
  9. PANTOPRAZOLE SODIUM [Concomitant]

REACTIONS (3)
  - FALL [None]
  - CYSTITIS [None]
  - CONFUSIONAL STATE [None]
